FAERS Safety Report 11440695 (Version 1)
Quarter: 2015Q3

REPORT INFORMATION
  Report Type: Spontaneous
  Country: US (occurrence: US)
  Receive Date: 20150901
  Receipt Date: 20150901
  Transmission Date: 20151125
  Serious: No
  Sender: FDA-Public Use
  Company Number: US-EISAI MEDICAL RESEARCH-EC-2015-009603

PATIENT
  Age: 86 Year
  Sex: Female
  Weight: 52 kg

DRUGS (8)
  1. ARICEPT [Suspect]
     Active Substance: DONEPEZIL HYDROCHLORIDE
     Indication: PRODUCT USED FOR UNKNOWN INDICATION
     Dosage: UNKNOWN
     Route: 048
     Dates: start: 201507, end: 20150810
  2. SPIRIVA [Concomitant]
     Active Substance: TIOTROPIUM BROMIDE MONOHYDRATE
  3. COMBIVENT [Concomitant]
     Active Substance: ALBUTEROL SULFATE\IPRATROPIUM BROMIDE
  4. LISINOPRIL. [Concomitant]
     Active Substance: LISINOPRIL
  5. ALBUTEROL. [Concomitant]
     Active Substance: ALBUTEROL
  6. TRAMADOL. [Concomitant]
     Active Substance: TRAMADOL
  7. LOVASTATIN. [Concomitant]
     Active Substance: LOVASTATIN
  8. NAMENDA XR [Concomitant]
     Active Substance: MEMANTINE HYDROCHLORIDE
     Indication: DEMENTIA

REACTIONS (6)
  - Rhinorrhoea [Unknown]
  - Ear discomfort [Unknown]
  - Nasal discomfort [Unknown]
  - Dyspnoea [Unknown]
  - Secretion discharge [Unknown]
  - Cough [Unknown]

NARRATIVE: CASE EVENT DATE: 2015
